FAERS Safety Report 5076149-X (Version None)
Quarter: 2006Q3

REPORT INFORMATION
  Report Type: 
  Country: None (occurrence: None)
  Receive Date: 20060809
  Receipt Date: 20060524
  Transmission Date: 20061208
  Serious: Yes (Life-Threatening, Hospitalization)
  Sender: FDA-Public Use
  Company Number: SG-MERCK-0605SGP00003

PATIENT
  Age: 70 Year
  Sex: Female

DRUGS (2)
  1. INVANZ [Suspect]
     Indication: URINARY TRACT INFECTION
     Route: 030
  2. PHENYTOIN [Concomitant]
     Indication: CONVULSION PROPHYLAXIS
     Route: 065

REACTIONS (1)
  - STATUS EPILEPTICUS [None]
